FAERS Safety Report 6596070-5 (Version None)
Quarter: 2010Q1

REPORT INFORMATION
  Report Type: 
  Country: None (occurrence: None)
  Receive Date: 20100223
  Receipt Date: 20100210
  Transmission Date: 20100710
  Serious: Yes (Other)
  Sender: FDA-Public Use
  Company Number: US-CUBIST-2010S1000078

PATIENT
  Age: 54 Year

DRUGS (6)
  1. CUBICIN [Suspect]
     Indication: STREPTOCOCCAL BACTERAEMIA
     Dates: start: 20091101
  2. CUBICIN [Suspect]
     Indication: ENDOCARDITIS BACTERIAL
     Dates: start: 20091101
  3. CUBICIN [Suspect]
     Indication: OFF LABEL USE
     Dates: start: 20091101
  4. CUBICIN [Suspect]
     Dates: start: 20090301
  5. CUBICIN [Suspect]
     Dates: start: 20090301
  6. CUBICIN [Suspect]
     Dates: start: 20090301

REACTIONS (3)
  - DRUG INEFFECTIVE FOR UNAPPROVED INDICATION [None]
  - ENDOCARDITIS BACTERIAL [None]
  - STREPTOCOCCAL BACTERAEMIA [None]
